FAERS Safety Report 12482744 (Version 3)
Quarter: 2016Q3

REPORT INFORMATION
  Report Type: Spontaneous
  Country: GB (occurrence: GB)
  Receive Date: 20160620
  Receipt Date: 20160722
  Transmission Date: 20161109
  Serious: Yes (Other)
  Sender: FDA-Public Use
  Company Number: GB-PFIZER INC-2016299193

PATIENT
  Age: 59 Year
  Sex: Female
  Weight: 64 kg

DRUGS (3)
  1. MOMETASONE FUROATE. [Interacting]
     Active Substance: MOMETASONE FUROATE
     Indication: SEASONAL ALLERGY
  2. MOMETASONE FUROATE. [Interacting]
     Active Substance: MOMETASONE FUROATE
     Indication: RHINITIS ALLERGIC
     Dosage: 2 DF, 2X/DAY (TWO SQUIRTS)
     Route: 055
     Dates: start: 20160527, end: 20160528
  3. IBUPROFEN. [Suspect]
     Active Substance: IBUPROFEN
     Indication: VULVOVAGINAL PAIN
     Dosage: UNK
     Dates: start: 20160527

REACTIONS (3)
  - Product label issue [Unknown]
  - Drug interaction [Unknown]
  - Insomnia [Recovered/Resolved]

NARRATIVE: CASE EVENT DATE: 20160527
